FAERS Safety Report 18898224 (Version 1)
Quarter: 2021Q1

REPORT INFORMATION
  Report Type: Spontaneous
  Country: US (occurrence: US)
  Receive Date: 20210214
  Receipt Date: 20210214
  Transmission Date: 20210420
  Serious: No
  Sender: FDA-Public Use
  Company Number: None

PATIENT

DRUGS (1)
  1. GAMUNEX?C [Suspect]
     Active Substance: HUMAN IMMUNOGLOBULIN G

REACTIONS (5)
  - Product quality issue [None]
  - Dyspnoea [None]
  - Urticaria [None]
  - Pruritus [None]
  - Back pain [None]

NARRATIVE: CASE EVENT DATE: 20210212
